FAERS Safety Report 8037169-6 (Version None)
Quarter: 2012Q1

REPORT INFORMATION
  Report Type: 
  Country: None (occurrence: None)
  Receive Date: 20120106
  Receipt Date: 20111220
  Transmission Date: 20120608
  Serious: Yes (Other)
  Sender: FDA-Public Use
  Company Number: 2011P1010934

PATIENT
  Age: 64 Year
  Sex: Female
  Weight: 75.7507 kg

DRUGS (11)
  1. GLIMEPIRIDE [Concomitant]
  2. CRESTOR [Concomitant]
  3. ARIMIDEX [Concomitant]
  4. METFORMIN HCL [Concomitant]
  5. SINUS PILLS (UNSPECIFIED) [Concomitant]
  6. CARTIA XT [Concomitant]
  7. TOPIRAMATE [Concomitant]
  8. WARFARIN SODIUM [Suspect]
     Indication: ATRIAL FIBRILLATION
     Dosage: 5;7.5 MG 4;3 DAYS A WEEK
     Dates: start: 20110101
  9. SLEEPING PILL (UNSPECIFIED) [Concomitant]
  10. VESICARE [Concomitant]
  11. OMEPRAZOLE [Concomitant]

REACTIONS (4)
  - CONDITION AGGRAVATED [None]
  - BREAST CANCER [None]
  - BRONCHITIS CHRONIC [None]
  - URINARY TRACT INFECTION [None]
